FAERS Safety Report 6280251-4 (Version None)
Quarter: 2009Q3

REPORT INFORMATION
  Report Type: 
  Country: None (occurrence: None)
  Receive Date: 20090723
  Receipt Date: 20080513
  Transmission Date: 20100115
  Serious: Yes (Other)
  Sender: FDA-Public Use
  Company Number: US-ASTRAZENECA-2007UW14341

PATIENT
  Age: 11857 Day
  Sex: Female
  Weight: 59.9 kg

DRUGS (28)
  1. SEROQUEL [Suspect]
     Indication: SCHIZOPHRENIA
     Dosage: 25 MG-100 MG
     Route: 048
     Dates: start: 20030923
  2. SEROQUEL [Suspect]
     Route: 048
     Dates: start: 20031001, end: 20061001
  3. RISPERDAL [Suspect]
     Indication: SCHIZOPHRENIA
     Dates: start: 20071001
  4. THIAMINE HCL [Concomitant]
  5. LORAZEPAM [Concomitant]
  6. CHLORDIAZEPOXIDE [Concomitant]
  7. IPRATROPIUM NEB [Concomitant]
  8. LEXAPRO [Concomitant]
  9. NEXIUM [Concomitant]
  10. PROMETHAZINE [Concomitant]
  11. MORPHINE [Concomitant]
  12. SENOKOT [Concomitant]
  13. ALBUTEROL [Concomitant]
  14. DIPHENHYDRAMINE HYDROCHLORIDE [Concomitant]
  15. CLINDAMYCIN [Concomitant]
  16. XOPENEX [Concomitant]
  17. LIDOCAINE [Concomitant]
  18. ABILIFY [Concomitant]
  19. IBUPROFEN [Concomitant]
  20. FENTANYL-100 [Concomitant]
  21. ROXICODONE [Concomitant]
  22. OXACILLIN [Concomitant]
  23. HYDROXYZINE [Concomitant]
  24. DEPAKOTE [Concomitant]
  25. FOLIC ACID [Concomitant]
  26. FLAGYL [Concomitant]
  27. SERTRALINE [Concomitant]
  28. AMBIEN [Concomitant]

REACTIONS (2)
  - PANCREATIC PSEUDOCYST [None]
  - PANCREATITIS CHRONIC [None]
